FAERS Safety Report 16491813 (Version 1)
Quarter: 2019Q2

REPORT INFORMATION
  Report Type: Spontaneous
  Country: US (occurrence: US)
  Receive Date: 20190518
  Receipt Date: 20190518
  Transmission Date: 20190711
  Serious: Yes (Hospitalization)
  Sender: FDA-Public Use
  Company Number: None

PATIENT
  Age: 55 Year
  Sex: Male
  Weight: 86.5 kg

DRUGS (5)
  1. VELCADE [Suspect]
     Active Substance: BORTEZOMIB
     Dates: end: 20190506
  2. VELCADE [Suspect]
     Active Substance: BORTEZOMIB
     Dates: end: 20190506
  3. LENALIDOMIDE (CC-5013) [Suspect]
     Active Substance: LENALIDOMIDE
     Dates: end: 20190510
  4. DEXAMETHASONE. [Suspect]
     Active Substance: DEXAMETHASONE
     Dates: end: 20190510
  5. LENALIDOMIDE (CC-5013) [Suspect]
     Active Substance: LENALIDOMIDE
     Dates: end: 20190510

REACTIONS (6)
  - Hypotension [None]
  - Enterocutaneous fistula [None]
  - Staphylococcus test positive [None]
  - White blood cell count increased [None]
  - Septic shock [None]
  - Abdominal abscess [None]

NARRATIVE: CASE EVENT DATE: 20190510
